FAERS Safety Report 12904111 (Version 3)
Quarter: 2017Q1

REPORT INFORMATION
  Report Type: Report from Study
  Country: CA (occurrence: CA)
  Receive Date: 20161102
  Receipt Date: 20170209
  Transmission Date: 20170428
  Serious: Yes (Hospitalization)
  Sender: FDA-Public Use
  Company Number: CA-JNJFOC-20161013119

PATIENT
  Age: 65 Year
  Sex: Female

DRUGS (1)
  1. DARZALEX [Suspect]
     Active Substance: DARATUMUMAB
     Indication: PLASMA CELL MYELOMA
     Route: 042
     Dates: start: 20161012

REACTIONS (11)
  - Renal disorder [Unknown]
  - Drug ineffective [Unknown]
  - Sinusitis [Unknown]
  - Blood potassium increased [Unknown]
  - Malaise [Unknown]
  - Haemoglobin decreased [Unknown]
  - Chills [Recovered/Resolved]
  - Fatigue [Unknown]
  - Tongue discolouration [Recovered/Resolved]
  - Epistaxis [Unknown]
  - Nausea [Unknown]

NARRATIVE: CASE EVENT DATE: 20161012
